FAERS Safety Report 17705055 (Version 3)
Quarter: 2020Q2

REPORT INFORMATION
  Report Type: Spontaneous
  Country: US (occurrence: US)
  Receive Date: 20200424
  Receipt Date: 20200615
  Transmission Date: 20200714
  Serious: No
  Sender: FDA-Public Use
  Company Number: US-PFIZER INC-2019441723

PATIENT
  Age: 62 Year
  Sex: Female

DRUGS (1)
  1. XELJANZ XR [Suspect]
     Active Substance: TOFACITINIB CITRATE
     Indication: RHEUMATOID ARTHRITIS
     Dosage: 11 MG, DAILY
     Route: 048
     Dates: start: 201909

REACTIONS (12)
  - Drug ineffective [Unknown]
  - Arthritis [Unknown]
  - Memory impairment [Unknown]
  - Headache [Unknown]
  - Cough [Unknown]
  - Vomiting [Recovering/Resolving]
  - Peripheral swelling [Unknown]
  - Hepatic enzyme increased [Unknown]
  - Secretion discharge [Unknown]
  - Pain [Unknown]
  - Hypersensitivity [Unknown]
  - Product dose omission [Unknown]
